FAERS Safety Report 4383262-9 (Version None)
Quarter: 2004Q2

REPORT INFORMATION
  Report Type: 
  Country: None (occurrence: None)
  Receive Date: 20040622
  Receipt Date: 20040622
  Transmission Date: 20050107
  Serious: Yes (Other)
  Sender: FDA-Public Use
  Company Number: None

PATIENT
  Sex: Female
  Weight: 38.5557 kg

DRUGS (1)
  1. TOPAMAX [Suspect]
     Indication: EPILEPSY
     Dosage: 150 MG PO BID
     Route: 048

REACTIONS (3)
  - BODY TEMPERATURE INCREASED [None]
  - ERYTHEMA [None]
  - SWEAT GLAND DISORDER [None]
